FAERS Safety Report 6574373-8 (Version None)
Quarter: 2010Q1

REPORT INFORMATION
  Report Type: 
  Country: None (occurrence: None)
  Receive Date: 20100208
  Receipt Date: 20100122
  Transmission Date: 20100710
  Serious: Yes (Hospitalization)
  Sender: FDA-Public Use
  Company Number: -MERCK-1001VEN00002

PATIENT
  Age: 35 Year
  Sex: Female

DRUGS (1)
  1. IMIPENEM AND CILASTATIN SODIUM [Suspect]
     Indication: PANCREATITIS ACUTE
     Route: 042

REACTIONS (1)
  - CHOLANGITIS SCLEROSING [None]
